FAERS Safety Report 5794999-9 (Version None)
Quarter: 2008Q2

REPORT INFORMATION
  Report Type: 
  Country: None (occurrence: None)
  Receive Date: 20080630
  Receipt Date: 20080620
  Transmission Date: 20081010
  Serious: Yes (Other)
  Sender: FDA-Public Use
  Company Number: US-GILEAD-2008-0017008

PATIENT
  Age: 42 Year
  Sex: Male

DRUGS (4)
  1. TRUVADA [Suspect]
     Indication: HIV INFECTION
  2. KALETRA [Concomitant]
     Indication: HIV INFECTION
  3. VICODIN [Concomitant]
     Indication: PAIN
  4. INTERFERON [Concomitant]
     Indication: HEPATITIS C

REACTIONS (1)
  - PORPHYRIA NON-ACUTE [None]
